FAERS Safety Report 4783650-2 (Version None)
Quarter: 2005Q3

REPORT INFORMATION
  Report Type: 
  Country: None (occurrence: None)
  Receive Date: 20050927
  Receipt Date: 20050620
  Transmission Date: 20060218
  Serious: No
  Sender: FDA-Public Use
  Company Number: USA050393457

PATIENT
  Age: 19 Year
  Sex: Male
  Weight: 86 kg

DRUGS (2)
  1. STRATTERA [Suspect]
     Indication: ATTENTION DEFICIT/HYPERACTIVITY DISORDER
     Dosage: 25 MG/1 DAY
     Dates: start: 20050301, end: 20050101
  2. NEXIUM [Concomitant]

REACTIONS (10)
  - DECREASED ACTIVITY [None]
  - DIZZINESS [None]
  - FATIGUE [None]
  - FEELING ABNORMAL [None]
  - HEART RATE INCREASED [None]
  - HEART RATE IRREGULAR [None]
  - HYPERHIDROSIS [None]
  - PALLOR [None]
  - PALPITATIONS [None]
  - SINUS TACHYCARDIA [None]
